FAERS Safety Report 7736164-1 (Version None)
Quarter: 2011Q3

REPORT INFORMATION
  Report Type: 
  Country: None (occurrence: None)
  Receive Date: 20110902
  Receipt Date: 20110819
  Transmission Date: 20111222
  Serious: Yes (Hospitalization, Other)
  Sender: FDA-Public Use
  Company Number: 1000023186

PATIENT
  Age: 64 Year
  Sex: Female

DRUGS (4)
  1. LEXAPRO [Suspect]
     Indication: DEPRESSION
     Dosage: 20 MG (20 MG, 1 IN 1 D),ORAL
     Route: 048
     Dates: start: 20110101, end: 20110815
  2. LEXAPRO [Suspect]
     Indication: ANXIETY
     Dosage: 20 MG (20 MG, 1 IN 1 D),ORAL
     Route: 048
     Dates: start: 20110101, end: 20110815
  3. LEXAPRO [Suspect]
     Indication: DEPRESSION
     Dosage: 5 MG (5 MG, 1 IN 1 D),ORAL
     Route: 048
     Dates: start: 20110401, end: 20110101
  4. LEXAPRO [Suspect]
     Indication: ANXIETY
     Dosage: 5 MG (5 MG, 1 IN 1 D),ORAL
     Route: 048
     Dates: start: 20110401, end: 20110101

REACTIONS (3)
  - ASTHENIA [None]
  - YELLOW SKIN [None]
  - THROMBOCYTOPENIA [None]
